FAERS Safety Report 20858803 (Version 1)
Quarter: 2022Q2

REPORT INFORMATION
  Report Type: Spontaneous
  Country: US (occurrence: US)
  Receive Date: 20220522
  Receipt Date: 20220522
  Transmission Date: 20220721
  Serious: No
  Sender: FDA-Public Use
  Company Number: US-BoehringerIngelheim-2022-BI-171913

PATIENT
  Age: 54 Year
  Sex: Female

DRUGS (2)
  1. JARDIANCE [Suspect]
     Active Substance: EMPAGLIFLOZIN
     Indication: Type 2 diabetes mellitus
     Dosage: ONE-HALF TABLET
     Route: 048
     Dates: start: 20220412
  2. JARDIANCE [Suspect]
     Active Substance: EMPAGLIFLOZIN
     Route: 048
     Dates: start: 20220421

REACTIONS (4)
  - Wrong technique in product usage process [Recovered/Resolved]
  - Dizziness [Unknown]
  - Vomiting [Unknown]
  - Sitting disability [Unknown]

NARRATIVE: CASE EVENT DATE: 20220412
